FAERS Safety Report 5285681-5 (Version None)
Quarter: 2007Q1

REPORT INFORMATION
  Report Type: 
  Country: None (occurrence: None)
  Receive Date: 20070126
  Receipt Date: 20060220
  Transmission Date: 20070707
  Serious: No
  Sender: FDA-Public Use
  Company Number: 2006CT001158

PATIENT
  Age: 73 Year
  Sex: Male
  Weight: 62 kg

DRUGS (13)
  1. VENTAVIS [Suspect]
     Indication: PULMONARY HYPERTENSION
     Dosage: SEE IMAGE
     Route: 055
     Dates: start: 20060203, end: 20060212
  2. VENTAVIS [Suspect]
     Indication: PULMONARY HYPERTENSION
     Dosage: SEE IMAGE
     Route: 055
     Dates: start: 20060212, end: 20060220
  3. ALDACTONE [Concomitant]
  4. ATROVENT [Concomitant]
  5. VITAMIN B COMPLEX CAP [Concomitant]
  6. WARFARIN SODIUM [Concomitant]
  7. LASIX [Concomitant]
  8. LEVOXYL [Concomitant]
  9. LISINOPRIL [Concomitant]
  10. OXYGEN [Concomitant]
  11. SYNTHROID [Concomitant]
  12. TRACLEER [Concomitant]
  13. VITAMIN A AND D [Concomitant]

REACTIONS (3)
  - CHEST PAIN [None]
  - FATIGUE [None]
  - HYPOTENSION [None]
